FAERS Safety Report 4378567-1 (Version None)
Quarter: 2004Q2

REPORT INFORMATION
  Report Type: 
  Country: None (occurrence: None)
  Receive Date: 20040609
  Receipt Date: 20040524
  Transmission Date: 20050107
  Serious: Yes (Hospitalization)
  Sender: FDA-Public Use
  Company Number: ES-JNJFOC-20040501177

PATIENT
  Age: 35 Year
  Sex: Male
  Weight: 90 kg

DRUGS (4)
  1. REMICADE (INFLIXIMAB, RECOMBINANT) LYOPHILIZED POWDER [Suspect]
     Indication: CROHN'S DISEASE
     Dosage: 5 MG/KG,  1 IN 1 DAY, INTRAVENOUS
     Route: 042
     Dates: start: 20040426, end: 20040426
  2. IMUIREL (AZATHIOPRINE) [Concomitant]
  3. CORTICVOSTEROID NOS (COSRTICOSTEROID NOS) [Concomitant]
  4. ISONIAZID [Concomitant]

REACTIONS (16)
  - ANURIA [None]
  - ASPIRATION [None]
  - BLOOD GLUCOSE INCREASED [None]
  - CARDIAC FAILURE [None]
  - COLLAPSE OF LUNG [None]
  - CYANOSIS [None]
  - DEPRESSED LEVEL OF CONSCIOUSNESS [None]
  - GASTROENTERITIS [None]
  - GENERAL PHYSICAL HEALTH DETERIORATION [None]
  - HYPOVOLAEMIA [None]
  - METABOLIC DISORDER [None]
  - RECTAL HAEMORRHAGE [None]
  - RENAL FAILURE [None]
  - RESPIRATORY FAILURE [None]
  - SEPTIC SHOCK [None]
  - STUPOR [None]
